FAERS Safety Report 4456920-5 (Version None)
Quarter: 2004Q3

REPORT INFORMATION
  Report Type: 
  Country: None (occurrence: None)
  Receive Date: 20040923
  Receipt Date: 20040915
  Transmission Date: 20050211
  Serious: Yes (Disabling)
  Sender: FDA-Public Use
  Company Number: FI-ROCHE-380898

PATIENT

DRUGS (1)
  1. ROACCUTAN [Suspect]
     Indication: ACNE
     Dates: start: 20020615, end: 20030215

REACTIONS (3)
  - CAESAREAN SECTION [None]
  - DEVELOPMENTAL DELAY [None]
  - MATERNAL DRUGS AFFECTING FOETUS [None]
